FAERS Safety Report 20526079 (Version 2)
Quarter: 2022Q1

REPORT INFORMATION
  Report Type: Report from Study
  Country: US (occurrence: US)
  Receive Date: 20220228
  Receipt Date: 20220310
  Transmission Date: 20220423
  Serious: Yes (Death, Hospitalization, Other)
  Sender: FDA-Public Use
  Company Number: US-BAYER-2019-125433

PATIENT
  Age: 60 Year
  Sex: Female
  Weight: 51.8 kg

DRUGS (3)
  1. COPANLISIB [Suspect]
     Active Substance: COPANLISIB
     Indication: Colon cancer metastatic
     Dosage: 60 MG ON DAYS 1, 8 AND 15 OF 28-DAY CYCLE
     Route: 042
     Dates: start: 20181004
  2. COPANLISIB [Suspect]
     Active Substance: COPANLISIB
     Indication: Metastases to pelvis
     Dosage: 60 MG ON DAYS 1, 8 AND 15 OF 28-DAY CYCLE
     Route: 042
     Dates: start: 20181101, end: 20181129
  3. COPANLISIB [Suspect]
     Active Substance: COPANLISIB
     Indication: Metastases to lung

REACTIONS (5)
  - Colon cancer metastatic [Fatal]
  - Dehydration [None]
  - Stomatitis [None]
  - Anaemia [None]
  - Urinary tract infection [None]

NARRATIVE: CASE EVENT DATE: 20181106
